FAERS Safety Report 23462434 (Version 2)
Quarter: 2024Q1

REPORT INFORMATION
  Report Type: Spontaneous
  Country: DE (occurrence: None)
  Receive Date: 20240131
  Receipt Date: 20240305
  Transmission Date: 20240409
  Serious: Yes (Life-Threatening, Hospitalization, Other)
  Sender: FDA-Public Use
  Company Number: 2024A021556

PATIENT
  Age: 56 Year
  Sex: Female

DRUGS (7)
  1. DURVALUMAB [Suspect]
     Active Substance: DURVALUMAB
     Dosage: 1500.0MG UNKNOWN
     Dates: start: 202111
  2. DURVALUMAB [Suspect]
     Active Substance: DURVALUMAB
     Dosage: 1500.0MG UNKNOWN
     Dates: start: 202203
  3. DURVALUMAB [Suspect]
     Active Substance: DURVALUMAB
     Dosage: 27 CYCLES1500.0MG UNKNOWN
     Dates: start: 202312
  4. CISPLATIN [Concomitant]
     Active Substance: CISPLATIN
     Dosage: 75.0MG/M2 UNKNOWN
     Dates: start: 202111
  5. CISPLATIN [Concomitant]
     Active Substance: CISPLATIN
     Dosage: UNKNOWN
     Dates: start: 202202
  6. ETOPOSIDE [Concomitant]
     Active Substance: ETOPOSIDE
     Dosage: 100.0MG/M2 UNKNOWN
     Dates: start: 202111
  7. ETOPOSIDE [Concomitant]
     Active Substance: ETOPOSIDE
     Dosage: UNKNOWN
     Dates: start: 202202

REACTIONS (3)
  - Haematotoxicity [Unknown]
  - Oesophagitis [Unknown]
  - Pneumonitis [Unknown]

NARRATIVE: CASE EVENT DATE: 20220101
